FAERS Safety Report 6703908-7 (Version None)
Quarter: 2010Q2

REPORT INFORMATION
  Report Type: 
  Country: None (occurrence: None)
  Receive Date: 20100428
  Receipt Date: 20100414
  Transmission Date: 20101027
  Serious: Yes (Death, Other)
  Sender: FDA-Public Use
  Company Number: TOR 2010-0059

PATIENT
  Age: 69 Year
  Sex: Female

DRUGS (2)
  1. FARESTON [Suspect]
     Indication: BREAST CANCER RECURRENT
     Dosage: ORAL
     Route: 048
  2. TAMOXIFEN (TAMOXIFEN) [Suspect]
     Indication: BREAST CANCER

REACTIONS (1)
  - ENDOMETRIAL CANCER [None]
